FAERS Safety Report 12921717 (Version 2)
Quarter: 2025Q3

REPORT INFORMATION
  Report Type: Spontaneous
  Country: JP (occurrence: JP)
  Receive Date: 20161108
  Receipt Date: 20250808
  Transmission Date: 20251021
  Serious: Yes (Life-Threatening)
  Sender: SANOFI AVENTIS
  Company Number: JP-SA-2016SA202351

PATIENT
  Age: 53 Year
  Sex: Male

DRUGS (6)
  1. DOCETAXEL [Suspect]
     Active Substance: DOCETAXEL
     Indication: Metastases to spine
  2. DOCETAXEL [Suspect]
     Active Substance: DOCETAXEL
     Indication: Lung carcinoma cell type unspecified stage III
  3. PACLITAXEL [Suspect]
     Active Substance: PACLITAXEL
     Indication: Metastases to spine
  4. PACLITAXEL [Suspect]
     Active Substance: PACLITAXEL
     Indication: Lung carcinoma cell type unspecified stage III
  5. GIMERACIL\OTERACIL\TEGAFUR [Suspect]
     Active Substance: GIMERACIL\OTERACIL POTASSIUM\TEGAFUR
     Indication: Lung carcinoma cell type unspecified stage III
  6. GIMERACIL\OTERACIL\TEGAFUR [Suspect]
     Active Substance: GIMERACIL\OTERACIL POTASSIUM\TEGAFUR
     Indication: Metastases to spine

REACTIONS (1)
  - Drug ineffective [Unknown]
